FAERS Safety Report 4735517-3 (Version None)
Quarter: 2005Q3

REPORT INFORMATION
  Report Type: 
  Country: None (occurrence: None)
  Receive Date: 20050801
  Receipt Date: 20050801
  Transmission Date: 20060218
  Serious: Yes (Hospitalization)
  Sender: FDA-Public Use
  Company Number: None

PATIENT
  Age: 38 Year
  Sex: Male

DRUGS (1)
  1. TOPIRAMATE [Suspect]
     Indication: COMPLEX REGIONAL PAIN SYNDROME
     Dosage: 25MG DAILY

REACTIONS (2)
  - ANXIETY [None]
  - SUICIDAL IDEATION [None]
